FAERS Safety Report 4527732-9 (Version None)
Quarter: 2004Q4

REPORT INFORMATION
  Report Type: 
  Country: None (occurrence: None)
  Receive Date: 20041122
  Receipt Date: 20040929
  Transmission Date: 20050328
  Serious: No
  Sender: FDA-Public Use
  Company Number: 2004-0007501

PATIENT
  Age: 55 Year
  Sex: Male
  Weight: 61.2356 kg

DRUGS (3)
  1. HEPSERA [Suspect]
     Indication: HEPATITIS B
     Dosage: 10 MG, 1 IN 1 D, ORAL
     Route: 048
     Dates: start: 20020101
  2. UREX (FUROSEMIDE ) [Concomitant]
  3. HUMIBID (GUAIFENESIN) [Concomitant]

REACTIONS (1)
  - PLANTAR FASCIITIS [None]
